FAERS Safety Report 23308941 (Version 1)
Quarter: 2023Q4

REPORT INFORMATION
  Report Type: Report from Study
  Country: US (occurrence: US)
  Receive Date: 20231218
  Receipt Date: 20231218
  Transmission Date: 20240110
  Serious: Yes (Life-Threatening, Hospitalization, Other)
  Sender: FDA-Public Use
  Company Number: US-MYLANLABS-2023M1134839

PATIENT
  Sex: Female
  Weight: 58 kg

DRUGS (1)
  1. YUPELRI [Suspect]
     Active Substance: REVEFENACIN
     Indication: Product used for unknown indication
     Dosage: 175 MICROGRAM/3ML (INHALE 3 ML EVERY DAY)
     Route: 055

REACTIONS (1)
  - Treatment noncompliance [Unknown]
